FAERS Safety Report 17310632 (Version 3)
Quarter: 2020Q1

REPORT INFORMATION
  Report Type: Report from Study
  Country: PL (occurrence: PL)
  Receive Date: 20200123
  Receipt Date: 20200330
  Transmission Date: 20200409
  Serious: Yes (Hospitalization)
  Sender: FDA-Public Use
  Company Number: PL-EXELIXIS-XL18420026766

PATIENT
  Age: 58 Year
  Sex: Male
  Weight: 96 kg

DRUGS (13)
  1. ATEZOLIZUMAB. [Suspect]
     Active Substance: ATEZOLIZUMAB
     Indication: HEPATOCELLULAR CARCINOMA
     Dosage: 1200 MG, Q3WEEKS
     Route: 048
     Dates: start: 20191219
  2. TETRACYCLIN [Concomitant]
  3. CLARITHROMYCINUM [Concomitant]
  4. XL184 [Suspect]
     Active Substance: CABOZANTINIB
     Indication: HEPATOCELLULAR CARCINOMA
     Dosage: 40 MG, QD
     Route: 048
     Dates: start: 20191219
  5. GLUCOPHAGE [Concomitant]
     Active Substance: METFORMIN HYDROCHLORIDE
  6. PERINDOPRIL [Concomitant]
     Active Substance: PERINDOPRIL
  7. AMLOPIN [Concomitant]
     Active Substance: AMLODIPINE BESYLATE
  8. CIPROFLOXACIN. [Concomitant]
     Active Substance: CIPROFLOXACIN
  9. RANLOSIN [Concomitant]
     Active Substance: TAMSULOSIN HYDROCHLORIDE
  10. PANTOPRAZOL [Concomitant]
     Active Substance: PANTOPRAZOLE SODIUM
  11. CEFUROXIM [Concomitant]
     Active Substance: CEFUROXIME
  12. ^PYLENE^ [Concomitant]
  13. BUSCOLYSIN [Concomitant]
     Active Substance: BUTYLSCOPOLAMINE

REACTIONS (1)
  - Bronchitis [Recovered/Resolved]

NARRATIVE: CASE EVENT DATE: 20191225
